FAERS Safety Report 13881225 (Version 5)
Quarter: 2017Q4

REPORT INFORMATION
  Report Type: Spontaneous
  Country: HU (occurrence: HU)
  Receive Date: 20170818
  Receipt Date: 20171030
  Transmission Date: 20180320
  Serious: Yes (Hospitalization)
  Sender: FDA-Public Use
  Company Number: HU-PFIZER INC-2017164644

PATIENT
  Age: 40 Year
  Sex: Female

DRUGS (5)
  1. SUTENT [Suspect]
     Active Substance: SUNITINIB MALATE
     Dosage: 50 MG, CYCLIC (5TH CYCLE, ONCE A DAY, ACCORDING TO 4/2 SCHEMA)
     Route: 048
     Dates: start: 20171016, end: 20171020
  2. SUTENT [Suspect]
     Active Substance: SUNITINIB MALATE
     Indication: RENAL CANCER
     Dosage: 50 MG, CYCLIC (1ST CYCLE, ONCE A DAY, ACCORDING TO 4/2 SCHEMA)
     Route: 048
     Dates: start: 20170327
  3. SUTENT [Suspect]
     Active Substance: SUNITINIB MALATE
     Dosage: 50 MG, CYCLIC (3RD CYCLE, ONCE A DAY, ACCORDING TO 4/2 SCHEMA)
     Route: 048
     Dates: start: 20170619, end: 20170716
  4. DIAPREL [Concomitant]
     Active Substance: GLICLAZIDE
     Dosage: 60 MG, 1X/DAY IN THE MORNING
  5. MERCKFORMIN [Concomitant]
     Active Substance: METFORMIN HYDROCHLORIDE
     Dosage: 1000 MG, 1X/DAY

REACTIONS (5)
  - Femur fracture [Not Recovered/Not Resolved]
  - Femur fracture [Not Recovered/Not Resolved]
  - Ageusia [Recovered/Resolved]
  - Fall [Not Recovered/Not Resolved]
  - Vomiting [Recovered/Resolved]

NARRATIVE: CASE EVENT DATE: 20170407
